FAERS Safety Report 22117629 (Version 1)
Quarter: 2023Q1

REPORT INFORMATION
  Report Type: Spontaneous
  Country: None (occurrence: US)
  Receive Date: 20230321
  Receipt Date: 20230321
  Transmission Date: 20230418
  Serious: Yes (Hospitalization, Other)
  Sender: FDA-Public Use
  Company Number: US-Oxford Pharmaceuticals, LLC-2139309

PATIENT
  Age: 33 Year
  Sex: Male

DRUGS (7)
  1. BUSPIRONE HYDROCHLORIDE [Suspect]
     Active Substance: BUSPIRONE HYDROCHLORIDE
     Indication: Generalised anxiety disorder
     Route: 045
  2. VALPROIC ACID [Concomitant]
     Active Substance: VALPROIC ACID
  3. TRAZODONE [Concomitant]
     Active Substance: TRAZODONE HYDROCHLORIDE
  4. GABAPENTIN [Concomitant]
     Active Substance: GABAPENTIN
  5. QUETIAPINE [Concomitant]
     Active Substance: QUETIAPINE
  6. PALIPERIDONE PALMITATE [Concomitant]
     Active Substance: PALIPERIDONE PALMITATE
     Route: 030
  7. CHLORPROMAZINE [Concomitant]
     Active Substance: CHLORPROMAZINE
     Route: 048

REACTIONS (5)
  - Schizoaffective disorder [Recovering/Resolving]
  - Psychotic disorder [Recovering/Resolving]
  - Intentional product use issue [Recovering/Resolving]
  - Drug abuse [Recovering/Resolving]
  - Treatment noncompliance [Unknown]
